FAERS Safety Report 8554397-1 (Version None)
Quarter: 2012Q3

REPORT INFORMATION
  Report Type: 
  Country: None (occurrence: None)
  Receive Date: 20120731
  Receipt Date: 20120723
  Transmission Date: 20120928
  Serious: Yes (Hospitalization, Other)
  Sender: FDA-Public Use
  Company Number: US-009507513-1207USA009719

PATIENT

DRUGS (4)
  1. LISINOPRIL [Suspect]
  2. AZATHIOPRINE [Suspect]
  3. ZOCOR [Suspect]
     Route: 048
  4. MESALAMINE [Suspect]

REACTIONS (5)
  - HAEMOGLOBIN DECREASED [None]
  - ENDOCARDITIS [None]
  - CARDIAC MURMUR [None]
  - LEUKOCYTOCLASTIC VASCULITIS [None]
  - ARTHRALGIA [None]
